FAERS Safety Report 4472015-9 (Version None)
Quarter: 2004Q4

REPORT INFORMATION
  Report Type: 
  Country: None (occurrence: None)
  Receive Date: 20041004
  Receipt Date: 20040917
  Transmission Date: 20050328
  Serious: Yes (Hospitalization)
  Sender: FDA-Public Use
  Company Number: H-CH2004-07446

PATIENT
  Age: 63 Year
  Sex: Male
  Weight: 73.8 kg

DRUGS (6)
  1. BOSENTAN(BOSENTAN I.PHS TABLET 125 MG)  TABLET [Suspect]
     Indication: PULMONARY HYPERTENSION
     Dosage: 125 MG, BID, ORAL : 62.5 MG, BID, ORAL
     Route: 048
     Dates: start: 20040426, end: 20040527
  2. BOSENTAN(BOSENTAN I.PHS TABLET 125 MG)  TABLET [Suspect]
     Indication: PULMONARY HYPERTENSION
     Dosage: 125 MG, BID, ORAL : 62.5 MG, BID, ORAL
     Route: 048
     Dates: start: 20040528, end: 20040723
  3. AZATHIOPRINE [Suspect]
     Indication: CONNECTIVE TISSUE DISORDER
     Dosage: 100 MG, QD, ORAL
     Route: 048
     Dates: start: 20040101, end: 20040701
  4. PREDNISOLONE [Concomitant]
  5. OMEPRAZOLE [Concomitant]
  6. COLCHICINA ^LIRCA^ (COLCHICINE) [Concomitant]

REACTIONS (4)
  - ASTHENIA [None]
  - NAUSEA [None]
  - VOMITING [None]
  - WEIGHT DECREASED [None]
